FAERS Safety Report 9457388 (Version 2)
Quarter: 2013Q3

REPORT INFORMATION
  Report Type: Spontaneous
  Country: JP (occurrence: None)
  Receive Date: 20130812
  Receipt Date: 20130828
  Transmission Date: 20140515
  Serious: Yes (Other)
  Sender: FDA-Public Use
  Company Number: SYM-2013-08403

PATIENT
  Age: 63 Year
  Sex: Female
  Weight: 38 kg

DRUGS (2)
  1. CHOREAZINE (TETRABENAZINE) [Suspect]
     Indication: HUNTINGTON^S DISEASE
     Route: 048
     Dates: start: 20130523, end: 20130529
  2. SERENACE (HALOPERIDOL) (HALOPERIDOL) [Concomitant]

REACTIONS (8)
  - Chorea [None]
  - Eating disorder [None]
  - Heart rate increased [None]
  - Dysarthria [None]
  - Hyperhidrosis [None]
  - Body temperature increased [None]
  - Tremor [None]
  - Dehydration [None]
